FAERS Safety Report 26009238 (Version 3)
Quarter: 2025Q4

REPORT INFORMATION
  Report Type: Spontaneous
  Country: GB (occurrence: GB)
  Receive Date: 20251107
  Receipt Date: 20251127
  Transmission Date: 20260118
  Serious: Yes (Hospitalization, Other)
  Sender: TEVA
  Company Number: GB-Pharmascience International Limited-2025-PIL-01236

PATIENT
  Age: 29 Year
  Sex: Female

DRUGS (2)
  1. DESMOPRESSIN [Suspect]
     Active Substance: DESMOPRESSIN
     Indication: Polyuria
     Route: 065
  2. INSULIN DEGLUDEC [Concomitant]
     Active Substance: INSULIN DEGLUDEC
     Indication: Product used for unknown indication
     Route: 065

REACTIONS (2)
  - Diabetic ketoacidosis [Unknown]
  - Hyponatraemia [Unknown]
